FAERS Safety Report 10686935 (Version 1)
Quarter: 2015Q1

REPORT INFORMATION
  Report Type: Report from Study
  Country: NL (occurrence: NL)
  Receive Date: 20150102
  Receipt Date: 20150102
  Transmission Date: 20150720
  Serious: Yes (Other)
  Sender: FDA-Public Use
  Company Number: NL-AMGEN-NLDSL2014101823

PATIENT
  Age: 55 Year
  Sex: Male

DRUGS (1)
  1. NEULASTA [Suspect]
     Active Substance: PEGFILGRASTIM
     Indication: PRODUCT USED FOR UNKNOWN INDICATION
     Dosage: 0.6 ML, Q2WK (10MG/ML)
     Route: 058
     Dates: start: 20141213

REACTIONS (3)
  - Hypersensitivity [Unknown]
  - Pruritus generalised [Unknown]
  - Chest discomfort [Unknown]

NARRATIVE: CASE EVENT DATE: 20141213
